FAERS Safety Report 6257524-4 (Version None)
Quarter: 2009Q3

REPORT INFORMATION
  Report Type: 
  Country: None (occurrence: None)
  Receive Date: 20090706
  Receipt Date: 20090629
  Transmission Date: 20100115
  Serious: Yes (Life-Threatening, Other)
  Sender: FDA-Public Use
  Company Number: US-AVENTIS-200915746US

PATIENT
  Sex: Male

DRUGS (2)
  1. LOVENOX [Suspect]
     Indication: THROMBOSIS PROPHYLAXIS
     Dosage: DOSE: UNK
  2. HEPARIN [Suspect]
     Dosage: DOSE: UNK

REACTIONS (6)
  - ABASIA [None]
  - CARDIAC ARREST [None]
  - CARDIOVASCULAR DISORDER [None]
  - COMPARTMENT SYNDROME [None]
  - HAEMORRHAGE [None]
  - UNEVALUABLE EVENT [None]
